FAERS Safety Report 8675703 (Version 5)
Quarter: 2013Q1

REPORT INFORMATION
  Report Type: Spontaneous
  Country: GB (occurrence: GB)
  Receive Date: 20120720
  Receipt Date: 20130326
  Transmission Date: 20140127
  Serious: Yes (Hospitalization)
  Sender: FDA-Public Use
  Company Number: GB-JNJFOC-20120710017

PATIENT
  Age: 68 None
  Sex: Female

DRUGS (2)
  1. XARELTO [Suspect]
     Indication: KNEE ARTHROPLASTY
     Route: 065
     Dates: start: 20101217, end: 201012
  2. XARELTO [Suspect]
     Indication: THROMBOSIS PROPHYLAXIS
     Route: 065
     Dates: start: 20101217, end: 201012

REACTIONS (24)
  - Liver disorder [Recovered/Resolved]
  - Circulatory collapse [Recovered/Resolved]
  - Abdominal pain upper [Recovering/Resolving]
  - Jaundice [Recovering/Resolving]
  - Malaise [Unknown]
  - Ocular discomfort [Unknown]
  - Epistaxis [Unknown]
  - Swelling [Unknown]
  - Flashback [Not Recovered/Not Resolved]
  - Drug hypersensitivity [Unknown]
  - Rhinitis [Unknown]
  - Lip infection [Unknown]
  - Oral infection [Unknown]
  - Nightmare [Not Recovered/Not Resolved]
  - Asthenia [Not Recovered/Not Resolved]
  - Fatigue [Unknown]
  - Dyspnoea [Unknown]
  - Hallucination [Unknown]
  - Malaise [Unknown]
  - Hypotension [Unknown]
  - Pain in extremity [Unknown]
  - Alopecia [Unknown]
  - Anaemia [Unknown]
  - Gingival pain [Unknown]
